FAERS Safety Report 5161055-2 (Version None)
Quarter: 2006Q4

REPORT INFORMATION
  Report Type: 
  Country: None (occurrence: None)
  Receive Date: 20061121
  Receipt Date: 20061106
  Transmission Date: 20070319
  Serious: Yes (Death)
  Sender: FDA-Public Use
  Company Number: 2006140788

PATIENT
  Age: 67 Year
  Sex: Male

DRUGS (2)
  1. ESTRACYT (ESTRAMUSTINE PHOSPHATE SODIUM) [Suspect]
     Indication: PROSTATE CANCER RECURRENT
     Dosage: ORAL
     Route: 048
     Dates: start: 20050801, end: 20060301
  2. DOCETAXEL (DOCETAXEL) [Suspect]
     Indication: PROSTATE CANCER RECURRENT
     Dosage: INTRAVENOUS
     Route: 042
     Dates: start: 20050801, end: 20060301

REACTIONS (4)
  - CONDITION AGGRAVATED [None]
  - INTERSTITIAL LUNG DISEASE [None]
  - PALPITATIONS [None]
  - RESPIRATORY DISTRESS [None]
